FAERS Safety Report 8408569-7 (Version None)
Quarter: 2012Q2

REPORT INFORMATION
  Report Type: 
  Country: None (occurrence: None)
  Receive Date: 20120604
  Receipt Date: 20120527
  Transmission Date: 20120825
  Serious: No
  Sender: FDA-Public Use
  Company Number: US-BAYER-2012-054233

PATIENT

DRUGS (3)
  1. VICODIN [Concomitant]
  2. ALEVE (CAPLET) [Suspect]
     Indication: FACIAL PAIN
     Route: 048
  3. FLEXERIL [Concomitant]

REACTIONS (1)
  - FACIAL PAIN [None]
